FAERS Safety Report 5652340-6 (Version None)
Quarter: 2008Q1

REPORT INFORMATION
  Report Type: 
  Country: None (occurrence: None)
  Receive Date: 20080305
  Receipt Date: 20080305
  Transmission Date: 20080703
  Serious: Yes (Other)
  Sender: FDA-Public Use
  Company Number: None

PATIENT
  Age: 48 Year
  Sex: Female
  Weight: 87.9978 kg

DRUGS (1)
  1. RITUXIMAB [Suspect]
     Indication: NEUROMYELITIS OPTICA
     Dosage: 700MG ONCE IV
     Route: 042
     Dates: start: 20080206

REACTIONS (5)
  - CONFUSIONAL STATE [None]
  - HALLUCINATION, VISUAL [None]
  - HERPES ZOSTER [None]
  - RASH [None]
  - SKIN LESION [None]
